FAERS Safety Report 6726585-8 (Version None)
Quarter: 2010Q2

REPORT INFORMATION
  Report Type: 
  Country: None (occurrence: None)
  Receive Date: 20100514
  Receipt Date: 20100504
  Transmission Date: 20101027
  Serious: Yes (Death)
  Sender: FDA-Public Use
  Company Number: AU-ELI_LILLY_AND_COMPANY-AU201005000979

PATIENT
  Age: 47 Year
  Sex: Female

DRUGS (4)
  1. FLUOXETINE [Suspect]
     Dosage: UNK, UNKNOWN
  2. VENLAFAXINE [Concomitant]
     Dosage: UNK, UNKNOWN
  3. AMITRIPTYLINE [Concomitant]
     Dosage: UNK, UNKNOWN
  4. DIAZEPAM [Concomitant]
     Dosage: UNK, UNKNOWN

REACTIONS (1)
  - DRUG TOXICITY [None]
